FAERS Safety Report 9048224 (Version 1)
Quarter: 2013Q1

REPORT INFORMATION
  Report Type: Spontaneous
  Country: US (occurrence: US)
  Receive Date: 20130204
  Receipt Date: 20130204
  Transmission Date: 20140127
  Serious: Yes (Hospitalization, Other)
  Sender: FDA-Public Use
  Company Number: US-TARO-2013P1001559

PATIENT
  Age: 70 Year
  Sex: Female
  Weight: 75.3 kg

DRUGS (18)
  1. WARFARIN SODIUM TABLETS USP 5MG [Suspect]
     Route: 048
     Dates: start: 201201, end: 201208
  2. WARFARIN SODIUM TABLETS USP 5MG [Suspect]
     Route: 048
     Dates: start: 201201, end: 201208
  3. WARFARIN SODIUM TABLETS USP 5MG [Suspect]
     Route: 048
     Dates: start: 201201, end: 201208
  4. WARFARIN SODIUM TABLETS USP 5MG [Suspect]
     Route: 048
     Dates: start: 201201, end: 201208
  5. WARFARIN SODIUM TABLETS USP 5MG [Suspect]
     Route: 048
     Dates: start: 20121129, end: 20121106
  6. WARFARIN SODIUM TABLETS USP 5MG [Suspect]
     Route: 048
     Dates: start: 20121129, end: 20121106
  7. WARFARIN SODIUM TABLETS USP 5MG [Suspect]
     Route: 048
     Dates: start: 20121207
  8. WARFARIN SODIUM TABLETS USP 5MG [Suspect]
     Route: 048
     Dates: start: 20121207
  9. WARFARIN SODIUM TABLETS USP 5MG [Suspect]
     Route: 048
     Dates: start: 20130124, end: 20130124
  10. WARFARIN SODIUM TABLETS USP 5MG [Suspect]
     Route: 048
     Dates: start: 20130124, end: 20130124
  11. WARFARIN SODIUM TABLETS USP 5MG [Suspect]
     Route: 048
     Dates: start: 20130125
  12. WARFARIN SODIUM TABLETS USP 5MG [Suspect]
     Route: 048
     Dates: start: 20130125
  13. ANTIBIOTIC (UNSPECIFIED) [Suspect]
     Dates: start: 20130101
  14. VERAPAMIL [Concomitant]
  15. BENICAR [Concomitant]
  16. ALLEGRA [Concomitant]
  17. ZETIA [Concomitant]
  18. MULTIVITAMIN (UNSPECIFIED) [Concomitant]

REACTIONS (5)
  - International normalised ratio fluctuation [Not Recovered/Not Resolved]
  - Thrombosis [Not Recovered/Not Resolved]
  - Poor peripheral circulation [Not Recovered/Not Resolved]
  - Drug interaction [Not Recovered/Not Resolved]
  - Product colour issue [Unknown]
